FAERS Safety Report 15552645 (Version 2)
Quarter: 2018Q4

REPORT INFORMATION
  Report Type: Spontaneous
  Country: FR (occurrence: FR)
  Receive Date: 20181025
  Receipt Date: 20181105
  Transmission Date: 20190205
  Serious: Yes (Other)
  Sender: FDA-Public Use
  Company Number: FR-INDIVIOR LIMITED-INDV-115184-2018

PATIENT
  Age: 48 Year
  Sex: Male

DRUGS (3)
  1. BUPRENORPHINE. [Suspect]
     Active Substance: BUPRENORPHINE
     Indication: PRODUCT USED FOR UNKNOWN INDICATION
     Dosage: UNK
     Route: 042
     Dates: end: 2001
  2. NICOTINE. [Suspect]
     Active Substance: NICOTINE
     Indication: TOBACCO USER
     Dosage: 40 CIGARETTES PER DAY
     Route: 055
  3. ALCOHOL. [Suspect]
     Active Substance: ALCOHOL
     Indication: ALCOHOL USE
     Dosage: GREATER THAN 20 UNITS PER DAY
     Route: 048
     Dates: start: 1990

REACTIONS (4)
  - Intentional product use issue [Recovered/Resolved]
  - Drug abuse [Not Recovered/Not Resolved]
  - Substance abuse [Not Recovered/Not Resolved]
  - Alcohol abuse [Not Recovered/Not Resolved]
